FAERS Safety Report 4711071-7 (Version None)
Quarter: 2005Q3

REPORT INFORMATION
  Report Type: 
  Country: None (occurrence: None)
  Receive Date: 20050708
  Receipt Date: 20050628
  Transmission Date: 20060218
  Serious: Yes (Hospitalization)
  Sender: FDA-Public Use
  Company Number: 2005093369

PATIENT
  Age: 78 Year
  Sex: Male

DRUGS (7)
  1. CLINDAMYCIN HCL [Suspect]
     Indication: ILL-DEFINED DISORDER
     Dosage: ORAL
     Route: 048
     Dates: start: 20050329, end: 20050420
  2. ROCEPHIN [Suspect]
     Indication: INFECTION
     Dosage: 1 GRAM (DAILY), INTRAMUSCULAR
     Route: 030
     Dates: start: 20050329, end: 20050420
  3. CORDARONE [Concomitant]
  4. ALLOPURINOL [Concomitant]
  5. CARVEDILOL [Concomitant]
  6. PLAVIX [Concomitant]
  7. LEVOTHYROXINE SODIUM [Concomitant]

REACTIONS (5)
  - AGRANULOCYTOSIS [None]
  - APLASIA [None]
  - ASTHENIA [None]
  - DRUG TOXICITY [None]
  - PYREXIA [None]
